FAERS Safety Report 26194755 (Version 1)
Quarter: 2025Q4

REPORT INFORMATION
  Report Type: Spontaneous
  Country: GB (occurrence: GB)
  Receive Date: 20251224
  Receipt Date: 20251224
  Transmission Date: 20260118
  Serious: Yes (Hospitalization, Other)
  Sender: ELI LILLY AND COMPANY
  Company Number: GB-ELI_LILLY_AND_COMPANY-US202512027413

PATIENT
  Age: 53 Year
  Sex: Male

DRUGS (3)
  1. TIRZEPATIDE [Suspect]
     Active Substance: TIRZEPATIDE
     Indication: Obesity
     Dosage: 2.5 MG, WEEKLY (1/W)
     Route: 065
  2. TIRZEPATIDE [Suspect]
     Active Substance: TIRZEPATIDE
     Dosage: 10 MG, WEEKLY (1/W)
     Route: 065
  3. TIRZEPATIDE [Suspect]
     Active Substance: TIRZEPATIDE
     Dosage: 2.5 MG, WEEKLY (1/W)
     Route: 065

REACTIONS (8)
  - Complicated diverticulitis [Recovered/Resolved]
  - Liver abscess [Recovered/Resolved]
  - Multi-organ disorder [Recovered/Resolved]
  - Bacterial sepsis [Recovered/Resolved]
  - Fibrosis [Recovered/Resolved]
  - Biliary tract disorder [Recovered/Resolved]
  - Weight decreased [Recovered/Resolved]
  - Haemorrhagic cyst [Unknown]
